FAERS Safety Report 9666564 (Version 13)
Quarter: 2015Q4

REPORT INFORMATION
  Report Type: Report from Study
  Country: CA (occurrence: CA)
  Receive Date: 20131104
  Receipt Date: 20151009
  Transmission Date: 20160305
  Serious: Yes (Hospitalization, Other)
  Sender: FDA-Public Use
  Company Number: PHHY2013CA057055

PATIENT
  Age: 40 Year
  Sex: Female
  Weight: 185 kg

DRUGS (6)
  1. GLEEVEC [Suspect]
     Active Substance: IMATINIB MESYLATE
     Dosage: 400 MG, QD
     Route: 048
     Dates: start: 20130604
  2. GLEEVEC [Suspect]
     Active Substance: IMATINIB MESYLATE
     Dosage: 400 MG, QD
     Route: 048
  3. GLEEVEC [Suspect]
     Active Substance: IMATINIB MESYLATE
     Indication: GASTROINTESTINAL STROMAL TUMOUR
     Dosage: 400 MG, QD
     Route: 048
     Dates: start: 20130603
  4. CYANOCOBALAMIN. [Concomitant]
     Active Substance: CYANOCOBALAMIN
     Indication: VITAMIN SUPPLEMENTATION
     Route: 065
  5. CELEXA [Concomitant]
     Active Substance: CITALOPRAM HYDROBROMIDE
     Indication: PRODUCT USED FOR UNKNOWN INDICATION
     Route: 065
  6. GLEEVEC [Suspect]
     Active Substance: IMATINIB MESYLATE
     Dosage: 600 MG, FOR 30 DAYS
     Route: 048

REACTIONS (37)
  - Food intolerance [Unknown]
  - Hypersomnia [Recovering/Resolving]
  - Swelling face [Recovering/Resolving]
  - Peripheral swelling [Recovering/Resolving]
  - Periorbital oedema [Recovering/Resolving]
  - Weight fluctuation [Unknown]
  - Nausea [Recovered/Resolved]
  - Erythema [Unknown]
  - Nasopharyngitis [Unknown]
  - Malaise [Unknown]
  - Cyst [Unknown]
  - Abnormal dreams [Recovered/Resolved]
  - Memory impairment [Unknown]
  - Pyrexia [Unknown]
  - Pain in extremity [Unknown]
  - Toothache [Recovered/Resolved]
  - Gastric ulcer [Recovered/Resolved]
  - Swelling [Unknown]
  - Diarrhoea [Recovering/Resolving]
  - Weight decreased [Unknown]
  - Constipation [Recovering/Resolving]
  - Decreased appetite [Unknown]
  - Abdominal pain [Unknown]
  - Second primary malignancy [Unknown]
  - Breast mass [Unknown]
  - Fatigue [Recovering/Resolving]
  - Headache [Unknown]
  - Myalgia [Unknown]
  - Rash [Recovered/Resolved]
  - Brain neoplasm malignant [Unknown]
  - Contusion [Unknown]
  - Dizziness [Unknown]
  - Arthropod bite [Unknown]
  - Nausea [Recovered/Resolved]
  - Arthralgia [Unknown]
  - Eye swelling [Recovering/Resolving]
  - Lacrimation increased [Unknown]

NARRATIVE: CASE EVENT DATE: 20130603
